FAERS Safety Report 6250240-4 (Version None)
Quarter: 2009Q2

REPORT INFORMATION
  Report Type: 
  Country: None (occurrence: None)
  Receive Date: 20090626
  Receipt Date: 20090626
  Transmission Date: 20091009
  Serious: Yes (Hospitalization)
  Sender: FDA-Public Use
  Company Number: None

PATIENT
  Age: 70 Year
  Sex: Male
  Weight: 103.4 kg

DRUGS (1)
  1. TICLOPIDINE HCL [Suspect]
     Dosage: 250 MG BID PO
     Route: 048
     Dates: start: 20070927, end: 20081125

REACTIONS (4)
  - BLOOD PRESSURE SYSTOLIC DECREASED [None]
  - DUODENAL ULCER HAEMORRHAGE [None]
  - HAEMOGLOBIN DECREASED [None]
  - SINUS TACHYCARDIA [None]
